FAERS Safety Report 9641528 (Version 3)
Quarter: 2013Q4

REPORT INFORMATION
  Report Type: Spontaneous
  Country: US (occurrence: US)
  Receive Date: 20131023
  Receipt Date: 20131218
  Transmission Date: 20140711
  Serious: Yes (Other)
  Sender: FDA-Public Use
  Company Number: US-TEVA-439806USA

PATIENT
  Sex: Female

DRUGS (5)
  1. PARAGARD 380A [Suspect]
     Indication: CONTRACEPTION
     Route: 015
  2. PRENATAL VITAMINS [Concomitant]
     Dates: start: 20130923
  3. RANITIDINE [Concomitant]
     Dosage: 300 MILLIGRAM DAILY;
     Dates: start: 20130912
  4. LORATADINE [Concomitant]
     Dosage: 10 MILLIGRAM DAILY;
     Dates: start: 20131031, end: 20131127
  5. SALINE NASAL SPRAY [Concomitant]

REACTIONS (2)
  - Pregnancy with contraceptive device [Unknown]
  - Drug ineffective [Unknown]
